FAERS Safety Report 17811382 (Version 1)
Quarter: 2020Q2

REPORT INFORMATION
  Report Type: Spontaneous
  Country: US (occurrence: US)
  Receive Date: 20200521
  Receipt Date: 20200521
  Transmission Date: 20200714
  Serious: No
  Sender: FDA-Public Use
  Company Number: US-PFIZER INC-2020089893

PATIENT
  Age: 67 Year
  Sex: Female

DRUGS (3)
  1. SUTENT [Suspect]
     Active Substance: SUNITINIB MALATE
     Indication: BREAST CANCER FEMALE
     Dosage: 50 MG, UNK
  2. SUTENT [Suspect]
     Active Substance: SUNITINIB MALATE
     Dosage: 12.5 MG
     Dates: start: 20200302
  3. SUTENT [Suspect]
     Active Substance: SUNITINIB MALATE
     Indication: RENAL CANCER
     Dosage: 37.5 MG, CYCLIC (3CAP(S) ONCE A DAY FOR 28DAYS, WITH 7 DAYS OFF 28 DAYS)

REACTIONS (7)
  - Pain [Unknown]
  - Off label use [Unknown]
  - Diarrhoea [Unknown]
  - Stomatitis [Unknown]
  - Product use in unapproved indication [Unknown]
  - Pain in jaw [Unknown]
  - Dry mouth [Unknown]

NARRATIVE: CASE EVENT DATE: 202003
